FAERS Safety Report 5901447-4 (Version None)
Quarter: 2008Q3

REPORT INFORMATION
  Report Type: 
  Country: None (occurrence: None)
  Receive Date: 20080925
  Receipt Date: 20080909
  Transmission Date: 20090109
  Serious: Yes (Congenital Anomaly)
  Sender: FDA-Public Use
  Company Number: B0537893A

PATIENT
  Sex: 0

DRUGS (6)
  1. CETIRIZINE HYDROCHLORIDE (FORMULATION UNKNOWN) [Suspect]
     Indication: HYPERSENSITIVITY
     Dosage: TRANSPLACENTARY
     Route: 064
  2. URSODEOXYCHOLIC ACID (FORMULATION UNKNOWN) [Suspect]
     Indication: BILIARY CIRRHOSIS
     Dosage: TRANSPLACENTARY
     Route: 064
  3. BUDESONIDE (FORMULATION UNKNOWN) (GENERIC) [Suspect]
     Indication: BILIARY CIRRHOSIS
     Dosage: TRANSPLACENTARY
     Route: 064
  4. CHOLESTYRAMINE (FORMULATION UNKNOWN) [Suspect]
     Indication: BILIARY CIRRHOSIS
     Dosage: TRANSPLACENTARY
     Route: 064
  5. PREDNISOLONE (FORMULATION UNKNOWN) (GENERIC) [Suspect]
     Indication: BILIARY CIRRHOSIS
     Dosage: TRANSPLACENTARY
     Route: 064
  6. NICODERM CQ [Suspect]
     Dosage: TRANSPLACENTARY
     Route: 064

REACTIONS (5)
  - ATRIAL SEPTAL DEFECT [None]
  - ATROPHY [None]
  - CONGENITAL ANOMALY [None]
  - MATERNAL DRUGS AFFECTING FOETUS [None]
  - PREMATURE BABY [None]
